FAERS Safety Report 23545591 (Version 1)
Quarter: 2024Q1

REPORT INFORMATION
  Report Type: Report from Study
  Country: US (occurrence: US)
  Receive Date: 20240220
  Receipt Date: 20240220
  Transmission Date: 20240410
  Serious: Yes (Death, Hospitalization, Other)
  Sender: FDA-Public Use
  Company Number: US-OTSUKA-2024_002416

PATIENT
  Sex: Male

DRUGS (1)
  1. TOLVAPTAN [Suspect]
     Active Substance: TOLVAPTAN
     Indication: Congenital cystic kidney disease
     Dosage: UNK
     Route: 065

REACTIONS (5)
  - Cardiac arrest [Fatal]
  - Coronary artery disease [Fatal]
  - Upper gastrointestinal haemorrhage [Unknown]
  - Prosthetic cardiac valve regurgitation [Unknown]
  - Vascular pseudoaneurysm [Unknown]

NARRATIVE: CASE EVENT DATE: 20240111
